FAERS Safety Report 22247036 (Version 1)
Quarter: 2023Q2

REPORT INFORMATION
  Report Type: Spontaneous
  Country: CN (occurrence: CN)
  Receive Date: 20230424
  Receipt Date: 20230424
  Transmission Date: 20230722
  Serious: Yes (Other)
  Sender: FDA-Public Use
  Company Number: CN-BRISTOL-MYERS SQUIBB COMPANY-2023-056058

PATIENT
  Age: 50 Year
  Sex: Female
  Weight: 65 kg

DRUGS (6)
  1. OPDIVO [Suspect]
     Active Substance: NIVOLUMAB
     Indication: Gastric cancer
     Dosage: FREQ : D1; DRUG USE-TIMES: 1; DRUG USE-DAYS: 1
     Route: 041
     Dates: start: 20230324, end: 20230324
  2. PACLITAXEL [Suspect]
     Active Substance: PACLITAXEL
     Indication: Gastric cancer
     Dosage: D1
     Route: 041
     Dates: start: 20230324, end: 20230324
  3. FLUOROURACIL [Suspect]
     Active Substance: FLUOROURACIL
     Indication: Gastric cancer
     Dosage: D1?IV PUMP
     Route: 042
     Dates: start: 20230324, end: 20230324
  4. SODIUM CHLORIDE [Concomitant]
     Active Substance: SODIUM CHLORIDE
     Indication: Gastric cancer
     Dosage: D1
     Route: 041
     Dates: start: 20230324, end: 20230324
  5. SODIUM CHLORIDE [Concomitant]
     Active Substance: SODIUM CHLORIDE
     Dosage: D1?IV PUMP
     Route: 042
     Dates: start: 20230324, end: 20230324
  6. SODIUM CHLORIDE [Concomitant]
     Active Substance: SODIUM CHLORIDE
     Dosage: D1
     Route: 041
     Dates: start: 20230324, end: 20230324

REACTIONS (2)
  - White blood cell count decreased [Recovering/Resolving]
  - Neutrophil count decreased [Recovering/Resolving]

NARRATIVE: CASE EVENT DATE: 20230410
